FAERS Safety Report 19677574 (Version 1)
Quarter: 2021Q3

REPORT INFORMATION
  Report Type: Spontaneous
  Country: US (occurrence: US)
  Receive Date: 20210809
  Receipt Date: 20210809
  Transmission Date: 20211014
  Serious: Yes (Other)
  Sender: FDA-Public Use
  Company Number: US-TEVA-2021-US-1940727

PATIENT
  Sex: Male

DRUGS (1)
  1. ISOTRETINOIN. [Suspect]
     Active Substance: ISOTRETINOIN
     Indication: ACNE
     Route: 065
     Dates: start: 2013

REACTIONS (7)
  - Depersonalisation/derealisation disorder [Unknown]
  - Sexual dysfunction [Unknown]
  - Physical disability [Unknown]
  - Blood testosterone decreased [Unknown]
  - Mental disorder [Unknown]
  - Behaviour disorder [Unknown]
  - Akathisia [Unknown]
